FAERS Safety Report 18288652 (Version 2)
Quarter: 2020Q4

REPORT INFORMATION
  Report Type: Spontaneous
  Country: US (occurrence: US)
  Receive Date: 20200921
  Receipt Date: 20201022
  Transmission Date: 20210113
  Serious: No
  Sender: FDA-Public Use
  Company Number: US-MYLANLABS-2020M1078927

PATIENT
  Age: 16 Year
  Sex: Female
  Weight: 73.9 kg

DRUGS (1)
  1. LIDOCAINE PATCH [Suspect]
     Active Substance: LIDOCAINE
     Indication: CHEST PAIN
     Dosage: 5 PERCENT, QD
     Route: 003
     Dates: start: 20200903

REACTIONS (2)
  - Product adhesion issue [Recovering/Resolving]
  - Off label use [Not Recovered/Not Resolved]

NARRATIVE: CASE EVENT DATE: 20200903
